FAERS Safety Report 6715861-0 (Version None)
Quarter: 2010Q2

REPORT INFORMATION
  Report Type: 
  Country: None (occurrence: None)
  Receive Date: 20100507
  Receipt Date: 20100428
  Transmission Date: 20101027
  Serious: Yes (Other)
  Sender: FDA-Public Use
  Company Number: US-JNJFOC-20100104739

PATIENT
  Age: 60 Year
  Sex: Female

DRUGS (6)
  1. REMICADE [Suspect]
     Indication: CROHN'S DISEASE
     Route: 042
  2. IMURAN [Concomitant]
     Indication: CROHN'S DISEASE
     Dosage: ^125^
     Route: 048
  3. STEROIDS NOS [Concomitant]
     Indication: CROHN'S DISEASE
  4. VANCOMYCIN [Concomitant]
     Indication: CLOSTRIDIAL INFECTION
     Dosage: ^250^
  5. COLAZAL [Concomitant]
  6. PREDNISONE [Concomitant]
     Dosage: ^35^
     Route: 048

REACTIONS (1)
  - VARICELLA [None]
